FAERS Safety Report 21474251 (Version 2)
Quarter: 2022Q4

REPORT INFORMATION
  Report Type: Report from Study
  Country: AU (occurrence: AU)
  Receive Date: 20221018
  Receipt Date: 20221025
  Transmission Date: 20230113
  Serious: Yes (Death)
  Sender: FDA-Public Use
  Company Number: AU-PFIZER INC-PV202200083225

PATIENT
  Age: 60 Year
  Sex: Male
  Weight: 85 kg

DRUGS (7)
  1. TALAZOPARIB [Suspect]
     Active Substance: TALAZOPARIB
     Indication: Prostate cancer metastatic
     Dosage: 1 MG, DAILY
     Route: 048
     Dates: start: 20200130, end: 20220513
  2. TALAZOPARIB [Suspect]
     Active Substance: TALAZOPARIB
     Indication: BRCA2 gene mutation
  3. XTANDI [Concomitant]
     Active Substance: ENZALUTAMIDE
     Indication: Prostate cancer
     Dosage: 160 MG, DAILY
     Route: 048
     Dates: start: 20151229, end: 20220629
  4. XTANDI [Concomitant]
     Active Substance: ENZALUTAMIDE
     Dosage: UNK
     Dates: start: 201512, end: 201907
  5. XTANDI [Concomitant]
     Active Substance: ENZALUTAMIDE
     Dosage: UNK
     Dates: start: 202001
  6. ZOLADEX [Concomitant]
     Active Substance: GOSERELIN ACETATE
     Indication: Prostate cancer
     Dosage: UNK
     Dates: start: 201404, end: 201404
  7. ZOLADEX [Concomitant]
     Active Substance: GOSERELIN ACETATE
     Dosage: 10.8 MG 12 WEEKLY
     Route: 058
     Dates: start: 20150227, end: 20220520

REACTIONS (2)
  - Second primary malignancy [Fatal]
  - Myeloid leukaemia [Fatal]

NARRATIVE: CASE EVENT DATE: 20220220
